FAERS Safety Report 17232904 (Version 1)
Quarter: 2020Q1

REPORT INFORMATION
  Report Type: Report from Study
  Country: US (occurrence: US)
  Receive Date: 20200103
  Receipt Date: 20200103
  Transmission Date: 20200409
  Serious: No
  Sender: FDA-Public Use
  Company Number: NVSC2019US084654

PATIENT
  Sex: Male

DRUGS (1)
  1. ENTRESTO [Suspect]
     Active Substance: SACUBITRIL\VALSARTAN
     Indication: PRODUCT USED FOR UNKNOWN INDICATION
     Dosage: 50 MG, BID (24/25 MG)
     Route: 048
     Dates: start: 20191128

REACTIONS (4)
  - Dyspnoea [Unknown]
  - Swelling [Unknown]
  - Fatigue [Unknown]
  - Weight increased [Unknown]
